FAERS Safety Report 5423504-1 (Version None)
Quarter: 2007Q3

REPORT INFORMATION
  Report Type: 
  Country: None (occurrence: None)
  Receive Date: 20070727
  Receipt Date: 20070604
  Transmission Date: 20080115
  Serious: No
  Sender: FDA-Public Use
  Company Number: 264414

PATIENT
  Age: 60 Year
  Sex: Male

DRUGS (5)
  1. LEVEMIR [Suspect]
     Indication: TYPE 1 DIABETES MELLITUS
     Dosage: 27 IU, QD, SUBCUTANEOUS; 29 IU, QD, SUBCUTANEOUS, 31 IU, QD, SUBCUTANEOUS, 33 IU, QD,SUBCUTANEOUS
     Route: 058
     Dates: start: 20070501, end: 20070501
  2. LEVEMIR [Suspect]
     Indication: TYPE 1 DIABETES MELLITUS
     Dosage: 27 IU, QD, SUBCUTANEOUS; 29 IU, QD, SUBCUTANEOUS, 31 IU, QD, SUBCUTANEOUS, 33 IU, QD,SUBCUTANEOUS
     Route: 058
     Dates: start: 20070501, end: 20070501
  3. LEVEMIR [Suspect]
     Indication: TYPE 1 DIABETES MELLITUS
     Dosage: 27 IU, QD, SUBCUTANEOUS; 29 IU, QD, SUBCUTANEOUS, 31 IU, QD, SUBCUTANEOUS, 33 IU, QD,SUBCUTANEOUS
     Route: 058
     Dates: start: 20070501, end: 20070501
  4. LEVEMIR [Suspect]
     Indication: TYPE 1 DIABETES MELLITUS
     Dosage: 27 IU, QD, SUBCUTANEOUS; 29 IU, QD, SUBCUTANEOUS, 31 IU, QD, SUBCUTANEOUS, 33 IU, QD,SUBCUTANEOUS
     Route: 058
     Dates: start: 20070501
  5. NOVOLOG [Suspect]
     Indication: TYPE 1 DIABETES MELLITUS
     Dosage: CARB RATIO, SUBCUTANEOUS
     Route: 058
     Dates: end: 20070501

REACTIONS (1)
  - BLOOD GLUCOSE FLUCTUATION [None]
